FAERS Safety Report 8043142-4 (Version None)
Quarter: 2012Q1

REPORT INFORMATION
  Report Type: 
  Country: None (occurrence: None)
  Receive Date: 20120112
  Receipt Date: 20120105
  Transmission Date: 20120608
  Serious: Yes (Other)
  Sender: FDA-Public Use
  Company Number: DE-GLAXOSMITHKLINE-A0957590A

PATIENT
  Sex: Male

DRUGS (3)
  1. NEBIVOLOL HCL [Concomitant]
     Indication: HYPERTENSION
  2. NICORETTE [Suspect]
     Indication: SMOKING CESSATION THERAPY
     Route: 002
     Dates: start: 20110301, end: 20111101
  3. SYMBICORT [Concomitant]
     Indication: BRONCHIAL HYPERREACTIVITY

REACTIONS (2)
  - INTENTIONAL DRUG MISUSE [None]
  - DIABETES MELLITUS INADEQUATE CONTROL [None]
